FAERS Safety Report 4509056-9 (Version None)
Quarter: 2004Q4

REPORT INFORMATION
  Report Type: 
  Country: None (occurrence: None)
  Receive Date: 20041025
  Receipt Date: 20031105
  Transmission Date: 20050328
  Serious: Yes (Other)
  Sender: FDA-Public Use
  Company Number: US-JNJFOC-20030903560

PATIENT
  Age: 38 Year
  Sex: Female
  Weight: 52.8441 kg

DRUGS (8)
  1. REMICADE [Suspect]
     Indication: COLITIS ULCERATIVE
     Dosage: 300 MG, INTRAVENOUS
     Route: 042
     Dates: start: 20020913
  2. REMICADE [Suspect]
     Indication: COLITIS ULCERATIVE
     Dosage: 300 MG, INTRAVENOUS
     Route: 042
     Dates: start: 20020927
  3. REMICADE [Suspect]
     Indication: COLITIS ULCERATIVE
     Dosage: 300 MG, INTRAVENOUS
     Route: 042
     Dates: start: 20021025
  4. REMICADE [Suspect]
     Indication: COLITIS ULCERATIVE
     Dosage: 300 MG, INTRAVENOUS
     Route: 042
     Dates: start: 20030520
  5. REMICADE [Suspect]
     Indication: COLITIS ULCERATIVE
     Dosage: 300 MG, INTRAVENOUS
     Route: 042
     Dates: start: 20030718
  6. REMICADE [Suspect]
     Indication: COLITIS ULCERATIVE
     Dosage: 300 MG, INTRAVENOUS
     Route: 042
     Dates: start: 20030924
  7. ULTRAM [Concomitant]
  8. CORTIFOAM ENEMA (HYDROCORTISONE) [Concomitant]

REACTIONS (1)
  - WEST NILE VIRAL INFECTION [None]
